FAERS Safety Report 10922981 (Version 1)
Quarter: 2015Q1

REPORT INFORMATION
  Report Type: Spontaneous
  Country: JP (occurrence: JP)
  Receive Date: 20150317
  Receipt Date: 20150317
  Transmission Date: 20150721
  Serious: Yes (Death, Hospitalization)
  Sender: FDA-Public Use
  Company Number: JP-PFIZER INC-2015084060

PATIENT
  Age: 7 Decade
  Sex: Female

DRUGS (2)
  1. TORISEL [Suspect]
     Active Substance: TEMSIROLIMUS
     Indication: RENAL CELL CARCINOMA
     Dosage: UNK
     Dates: start: 20101022, end: 20110407
  2. TORISEL [Suspect]
     Active Substance: TEMSIROLIMUS
     Dosage: UNK
     Dates: start: 20110419, end: 20110714

REACTIONS (3)
  - Bone marrow failure [Recovered/Resolved]
  - Renal cell carcinoma [Fatal]
  - Disease progression [Fatal]

NARRATIVE: CASE EVENT DATE: 20110219
